FAERS Safety Report 7849880-8 (Version None)
Quarter: 2011Q4

REPORT INFORMATION
  Report Type: 
  Country: None (occurrence: None)
  Receive Date: 20111021
  Receipt Date: 20111014
  Transmission Date: 20120403
  Serious: Yes (Other)
  Sender: FDA-Public Use
  Company Number: 1000024756

PATIENT
  Age: 51 Year
  Sex: Female

DRUGS (1)
  1. CELEXA [Suspect]

REACTIONS (2)
  - ENDOMETRIOSIS [None]
  - UTERINE LEIOMYOMA [None]
